FAERS Safety Report 12474201 (Version 4)
Quarter: 2018Q4

REPORT INFORMATION
  Report Type: Spontaneous
  Country: US (occurrence: US)
  Receive Date: 20160616
  Receipt Date: 20181203
  Transmission Date: 20190204
  Serious: Yes (Hospitalization)
  Sender: FDA-Public Use
  Company Number: US-ASTRAZENECA-2016SE64832

PATIENT
  Age: 608 Month
  Sex: Female
  Weight: 90.7 kg

DRUGS (1)
  1. SYMBICORT [Suspect]
     Active Substance: BUDESONIDE\FORMOTEROL FUMARATE DIHYDRATE
     Indication: CHRONIC OBSTRUCTIVE PULMONARY DISEASE
     Dosage: 160/4.5 MCG 2 PUFFS 3 TIMES PER DAY
     Route: 055

REACTIONS (8)
  - Feeling abnormal [Unknown]
  - Device failure [Unknown]
  - Device issue [Unknown]
  - Insurance issue [Unknown]
  - Condition aggravated [Unknown]
  - Intentional product misuse [Unknown]
  - Dyspnoea [Unknown]
  - Product dose omission [Unknown]

NARRATIVE: CASE EVENT DATE: 201605
